FAERS Safety Report 7046024-X (Version None)
Quarter: 2010Q4

REPORT INFORMATION
  Report Type: 
  Country: None (occurrence: None)
  Receive Date: 20101013
  Receipt Date: 20101013
  Transmission Date: 20110411
  Serious: Yes (Other)
  Sender: FDA-Public Use
  Company Number: None

PATIENT
  Age: 40 Year
  Sex: Male
  Weight: 106.5953 kg

DRUGS (1)
  1. PROPECIA [Suspect]
     Dosage: 1 MG DAILY PO
     Route: 048
     Dates: start: 20081101, end: 20100315

REACTIONS (17)
  - ASTHENIA [None]
  - BLUNTED AFFECT [None]
  - BODY TEMPERATURE DECREASED [None]
  - CHILLS [None]
  - DEPRESSION [None]
  - EMOTIONAL DISORDER [None]
  - ENDOCRINE DISORDER [None]
  - ERECTILE DYSFUNCTION [None]
  - HYPOGONADISM [None]
  - HYPOTONIA [None]
  - LIBIDO DECREASED [None]
  - LOSS OF LIBIDO [None]
  - MUSCLE ATROPHY [None]
  - PENIS DISORDER [None]
  - SEXUAL DYSFUNCTION [None]
  - TESTICULAR PAIN [None]
  - UNEVALUABLE EVENT [None]
